FAERS Safety Report 10261653 (Version 1)
Quarter: 2014Q2

REPORT INFORMATION
  Report Type: Spontaneous
  Country: NO (occurrence: NO)
  Receive Date: 20140626
  Receipt Date: 20140626
  Transmission Date: 20141212
  Serious: Yes (Other)
  Sender: FDA-Public Use
  Company Number: NO-NOVOPROD-413867

PATIENT
  Age: 66 Year
  Sex: Male

DRUGS (10)
  1. VICTOZA [Suspect]
     Indication: DIABETES MELLITUS
     Dosage: 0.6 MG, QD
     Route: 058
     Dates: start: 20140506, end: 201405
  2. VICTOZA [Suspect]
     Dosage: 1.2 MG, QD
     Route: 058
  3. VICTOZA [Suspect]
     Dosage: 0.6 MG, QD
     Route: 058
  4. NEXIUM                             /01479302/ [Concomitant]
     Route: 048
  5. HYDROCHLOROTHIAZIDE W/LOSARTAN [Concomitant]
     Dosage: 100 MG + 25 MG
     Route: 048
  6. ATORVASTATIN SANDOZ [Concomitant]
     Route: 048
  7. GLUCOPHAGE [Concomitant]
     Route: 048
  8. HUMALOG BASAL [Concomitant]
     Route: 058
  9. ALBYL-E [Concomitant]
     Route: 048
  10. METOPROLOL SANDOZ                  /00376902/ [Concomitant]
     Route: 048

REACTIONS (1)
  - Rectal haemorrhage [Recovered/Resolved]
